FAERS Safety Report 7343477-4 (Version None)
Quarter: 2011Q1

REPORT INFORMATION
  Report Type: 
  Country: None (occurrence: None)
  Receive Date: 20110310
  Receipt Date: 20100204
  Transmission Date: 20110831
  Serious: No
  Sender: FDA-Public Use
  Company Number: A0842926A

PATIENT
  Age: 49 Year
  Sex: Female

DRUGS (1)
  1. NICORETTE (MINT) [Suspect]
     Dates: end: 20100202

REACTIONS (7)
  - GINGIVITIS [None]
  - OEDEMA MOUTH [None]
  - GINGIVAL SWELLING [None]
  - SWELLING FACE [None]
  - ORAL PAIN [None]
  - GINGIVAL PAIN [None]
  - STOMATITIS [None]
